FAERS Safety Report 5347474-X (Version None)
Quarter: 2007Q2

REPORT INFORMATION
  Report Type: 
  Country: None (occurrence: None)
  Receive Date: 20070606
  Receipt Date: 20070529
  Transmission Date: 20071010
  Serious: Yes (Hospitalization)
  Sender: FDA-Public Use
  Company Number: PHHO2007GB09098

PATIENT
  Age: 13 Year
  Sex: Female
  Weight: 58.4 kg

DRUGS (1)
  1. CGP 57148B [Suspect]
     Indication: ACUTE LYMPHOCYTIC LEUKAEMIA
     Dosage: 300 MG/M2, QD
     Route: 048
     Dates: end: 20070524

REACTIONS (5)
  - BACTERAEMIA [None]
  - CATHETER SEPSIS [None]
  - HYPOMAGNESAEMIA [None]
  - NEUTROPENIC SEPSIS [None]
  - SEPSIS [None]
